FAERS Safety Report 21059339 (Version 1)
Quarter: 2022Q3

REPORT INFORMATION
  Report Type: Spontaneous
  Country: KR (occurrence: None)
  Receive Date: 20220708
  Receipt Date: 20220708
  Transmission Date: 20221027
  Serious: Yes (Other)
  Sender: FDA-Public Use
  Company Number: 2022A240807

PATIENT
  Sex: Male

DRUGS (1)
  1. TAGRISSO [Suspect]
     Active Substance: OSIMERTINIB
     Dosage: 80MG FOR 40 MONTHS80.0MG UNKNOWN
     Route: 048

REACTIONS (5)
  - Disease recurrence [Unknown]
  - Neoplasm [Unknown]
  - Drug resistance [Unknown]
  - Diarrhoea [Unknown]
  - Pruritus [Unknown]
